FAERS Safety Report 7003140-6 (Version None)
Quarter: 2010Q3

REPORT INFORMATION
  Report Type: 
  Country: None (occurrence: None)
  Receive Date: 20100920
  Receipt Date: 20100309
  Transmission Date: 20110219
  Serious: Yes (Hospitalization)
  Sender: FDA-Public Use
  Company Number: US-ASTRAZENECA-2009SE15658

PATIENT
  Age: 18209 Day
  Sex: Male
  Weight: 104.3 kg

DRUGS (7)
  1. SEROQUEL [Suspect]
     Indication: BIPOLAR DISORDER
     Route: 048
     Dates: start: 20000101
  2. SEROQUEL [Suspect]
     Route: 048
     Dates: start: 20000601
  3. INSULIN [Concomitant]
     Indication: TYPE 2 DIABETES MELLITUS
     Dosage: 20 UNITS
     Dates: start: 20070901
  4. ABILIFY [Concomitant]
     Dates: start: 20090101, end: 20090601
  5. HALDOL [Concomitant]
     Dates: start: 20040401, end: 20040501
  6. RISPERDAL [Concomitant]
     Dates: start: 20000601, end: 20000801
  7. ZYPREXA [Concomitant]
     Dates: start: 20001001, end: 20010401

REACTIONS (2)
  - OBESITY [None]
  - TYPE 2 DIABETES MELLITUS [None]
